FAERS Safety Report 8874989 (Version 1)
Quarter: 2012Q4

REPORT INFORMATION
  Report Type: 
  Country: US (occurrence: US)
  Receive Date: 20121029
  Receipt Date: 20121029
  Transmission Date: 20130627
  Serious: No
  Sender: FDA-Public Use
  Company Number: US-009507513-1210USA007488

PATIENT
  Sex: Male

DRUGS (8)
  1. VICTRELIS [Suspect]
     Dosage: 4 DF, tid, every 7 to 9 hours
     Route: 048
  2. RIBAVIRIN [Suspect]
     Dosage: 400 mg, UNK
  3. PEGASYS [Suspect]
     Dosage: 180 mcg/m
  4. MAXI MULTI [Concomitant]
  5. LISINOPRIL [Concomitant]
     Dosage: 30 mg, UNK
  6. LISINOPRIL [Concomitant]
     Dosage: 30 mg, UNK
  7. VICODIN [Concomitant]
     Dosage: 5-500 mg
  8. ALEVE [Concomitant]
     Dosage: 220 mg, UNK

REACTIONS (3)
  - White blood cell count decreased [Unknown]
  - Depression [Unknown]
  - Fatigue [Unknown]
